FAERS Safety Report 4809340-5 (Version None)
Quarter: 2005Q4

REPORT INFORMATION
  Report Type: 
  Country: None (occurrence: None)
  Receive Date: 20051021
  Receipt Date: 20020411
  Transmission Date: 20060501
  Serious: No
  Sender: FDA-Public Use
  Company Number: USA020414205

PATIENT
  Age: 25 Year
  Sex: Female

DRUGS (1)
  1. ZYPREXA [Suspect]
     Indication: MENTAL DISORDER
     Dosage: 5 MG/DAY
     Dates: start: 20020201, end: 20020401

REACTIONS (2)
  - MENORRHAGIA [None]
  - OVERDOSE [None]
